FAERS Safety Report 12105840 (Version 1)
Quarter: 2016Q1

REPORT INFORMATION
  Report Type: Spontaneous
  Country: US (occurrence: US)
  Receive Date: 20160223
  Receipt Date: 20160223
  Transmission Date: 20160526
  Serious: No
  Sender: FDA-Public Use
  Company Number: GXBR2015US002551

PATIENT
  Sex: Female
  Weight: 72.56 kg

DRUGS (2)
  1. DESONIDE. [Suspect]
     Active Substance: DESONIDE
     Indication: PRURITUS
     Dosage: 0.05 %, UNK
     Route: 061
     Dates: start: 201510
  2. VITAMIN D [Concomitant]
     Active Substance: CHOLECALCIFEROL
     Dosage: 2000 MG, QD

REACTIONS (1)
  - Drug ineffective [Not Recovered/Not Resolved]
